FAERS Safety Report 19686254 (Version 1)
Quarter: 2021Q3

REPORT INFORMATION
  Report Type: Spontaneous
  Country: US (occurrence: US)
  Receive Date: 20210811
  Receipt Date: 20210811
  Transmission Date: 20211014
  Serious: Yes (Other)
  Sender: FDA-Public Use
  Company Number: US-MYLANLABS-2021M1049714

PATIENT
  Age: 9 Year
  Sex: Female
  Weight: 48.8 kg

DRUGS (6)
  1. CITALOPRAM [Suspect]
     Active Substance: CITALOPRAM HYDROBROMIDE
     Indication: ATTENTION DEFICIT HYPERACTIVITY DISORDER
     Dosage: 30 MILLIGRAM, QD,CITALOPRAM HAD BEEN INCREASED FROM 10TO30MG OVER A 2WEEK PERIOD BEFORE ED REFERRAL
     Route: 065
  2. RISPERIDONE. [Suspect]
     Active Substance: RISPERIDONE
     Indication: OPPOSITIONAL DEFIANT DISORDER
     Dosage: 1 MILLIGRAM, BID, STABLE DOSE FOR 6 MONTHS
     Route: 065
  3. RISPERIDONE. [Suspect]
     Active Substance: RISPERIDONE
     Indication: ATTENTION DEFICIT HYPERACTIVITY DISORDER
     Dosage: 1.75 MILLIGRAM, BID
     Route: 065
  4. CITALOPRAM [Suspect]
     Active Substance: CITALOPRAM HYDROBROMIDE
     Indication: OPPOSITIONAL DEFIANT DISORDER
     Dosage: 10 MILLIGRAM, QD
     Route: 065
  5. RISPERIDONE. [Suspect]
     Active Substance: RISPERIDONE
     Indication: PSYCHOTIC DISORDER
  6. CITALOPRAM [Suspect]
     Active Substance: CITALOPRAM HYDROBROMIDE
     Indication: PSYCHOTIC DISORDER

REACTIONS (4)
  - Agitation [Recovered/Resolved]
  - Psychotic disorder [Recovered/Resolved]
  - Delusion [Recovered/Resolved]
  - Hyperprolactinaemia [Recovered/Resolved]
